FAERS Safety Report 4626198-8 (Version None)
Quarter: 2005Q2

REPORT INFORMATION
  Report Type: 
  Country: None (occurrence: None)
  Receive Date: 20050404
  Receipt Date: 20050225
  Transmission Date: 20051028
  Serious: Yes (Hospitalization, Other)
  Sender: FDA-Public Use
  Company Number: PHHO2005JP03533

PATIENT
  Age: 77 Year
  Sex: Male
  Weight: 46 kg

DRUGS (8)
  1. DIOVAN [Suspect]
     Indication: HYPERTENSION
     Dosage: 80 MG, QD
     Route: 048
     Dates: start: 20030110, end: 20040707
  2. MUCOSTA [Suspect]
     Indication: GASTRODUODENAL ULCER
     Dosage: 100 MG, TID
     Route: 048
     Dates: start: 20030510, end: 20030927
  3. OMEPRAL [Suspect]
     Indication: REFLUX OESOPHAGITIS
     Dosage: 10 MG, QD
     Route: 048
     Dates: start: 20030510, end: 20030927
  4. MUCODYNE [Concomitant]
  5. KIPRES [Concomitant]
  6. PULMICORT [Concomitant]
  7. TERSIGAN [Concomitant]
  8. TAKEPRON [Concomitant]

REACTIONS (6)
  - CEREBRAL ARTERY OCCLUSION [None]
  - CEREBRAL INFARCTION [None]
  - CEREBRAL THROMBOSIS [None]
  - GYNAECOMASTIA [None]
  - HEMIPLEGIA [None]
  - THROMBOTIC STROKE [None]
